FAERS Safety Report 10350857 (Version 1)
Quarter: 2014Q3

REPORT INFORMATION
  Report Type: Spontaneous
  Country: US (occurrence: None)
  Receive Date: 20140728
  Receipt Date: 20140728
  Transmission Date: 20150326
  Serious: Yes (Life-Threatening, Hospitalization)
  Sender: FDA-Public Use
  Company Number: None

PATIENT
  Age: 55 Year
  Sex: Male
  Weight: 97.52 kg

DRUGS (1)
  1. CIMZIA [Suspect]
     Active Substance: CERTOLIZUMAB PEGOL
     Indication: PSORIATIC ARTHROPATHY
     Dosage: 2 INJECTIONS  MONTHLY GIVEN INTO/UNDER THE SKIN
     Dates: start: 20140403, end: 20140618

REACTIONS (1)
  - Pulmonary haemorrhage [None]

NARRATIVE: CASE EVENT DATE: 20140620
